FAERS Safety Report 5199292-3 (Version None)
Quarter: 2006Q4

REPORT INFORMATION
  Report Type: 
  Country: None (occurrence: None)
  Receive Date: 20061229
  Receipt Date: 20061214
  Transmission Date: 20070319
  Serious: Yes (Death, Hospitalization)
  Sender: FDA-Public Use
  Company Number: DSA_28531_2006

PATIENT
  Age: 86 Year
  Sex: Male
  Weight: 88.4514 kg

DRUGS (10)
  1. ATIVAN [Suspect]
     Dosage: 1 MG ONCE PO
     Route: 048
     Dates: start: 20060718, end: 20060718
  2. ATIVAN [Suspect]
     Dosage: 1 MG ONCE
     Dates: start: 20060718, end: 20060718
  3. LASIX [Concomitant]
  4. PLAVIX [Concomitant]
  5. PAXIL [Concomitant]
  6. LOPRESSOR [Concomitant]
  7. ASPIRIN [Concomitant]
  8. SIMVASTATIN [Concomitant]
  9. DONEPEZIL HCL [Concomitant]
  10. ^IELG^ [Concomitant]

REACTIONS (10)
  - ABASIA [None]
  - ASTHENIA [None]
  - CONFUSIONAL STATE [None]
  - DELIRIUM [None]
  - FEELING ABNORMAL [None]
  - HEART DISEASE CONGENITAL [None]
  - HYPOXIA [None]
  - INCONTINENCE [None]
  - PSYCHOTIC DISORDER [None]
  - TRANSIENT ISCHAEMIC ATTACK [None]
